FAERS Safety Report 25452731 (Version 2)
Quarter: 2025Q3

REPORT INFORMATION
  Report Type: Spontaneous
  Country: EU (occurrence: EU)
  Receive Date: 20250618
  Receipt Date: 20250707
  Transmission Date: 20251020
  Serious: Yes (Hospitalization, Other)
  Sender: MYLAN
  Company Number: EU-BALDACCIPT-2025042

PATIENT
  Age: 59 Year
  Sex: Male

DRUGS (4)
  1. VALSARTAN [Suspect]
     Active Substance: VALSARTAN
     Indication: Product used for unknown indication
  2. VALSARTAN [Suspect]
     Active Substance: VALSARTAN
     Route: 065
  3. VALSARTAN [Suspect]
     Active Substance: VALSARTAN
     Route: 065
  4. VALSARTAN [Suspect]
     Active Substance: VALSARTAN

REACTIONS (1)
  - Eczema [Recovering/Resolving]
